FAERS Safety Report 23049932 (Version 1)
Quarter: 2023Q4

REPORT INFORMATION
  Report Type: Spontaneous
  Country: US (occurrence: US)
  Receive Date: 20231010
  Receipt Date: 20231010
  Transmission Date: 20240110
  Serious: No
  Sender: FDA-Public Use
  Company Number: US-BRISTOL-MYERS SQUIBB COMPANY-2023-143329

PATIENT
  Sex: Male

DRUGS (2)
  1. ELIQUIS [Suspect]
     Active Substance: APIXABAN
     Indication: Transient ischaemic attack
     Dosage: DOSE : 5 MG;     FREQ : BID
     Route: 048
     Dates: start: 202001
  2. ELIQUIS [Suspect]
     Active Substance: APIXABAN
     Indication: Cerebral infarction

REACTIONS (2)
  - Suspected counterfeit product [Unknown]
  - Product dispensing issue [Unknown]
